FAERS Safety Report 8010198-4 (Version None)
Quarter: 2011Q4

REPORT INFORMATION
  Report Type: 
  Country: None (occurrence: None)
  Receive Date: 20111221
  Receipt Date: 20111214
  Transmission Date: 20120403
  Serious: Yes (Hospitalization, Congenital Anomaly, Other)
  Sender: FDA-Public Use
  Company Number: 2009SP021569

PATIENT
  Age: 0 Day
  Sex: Female
  Weight: 1.21 kg

DRUGS (20)
  1. PEG-INTRON [Suspect]
  2. RIBAVIRIN [Suspect]
     Indication: PREGNANCY
  3. TOWATHIEM (SALICYLAMIDE, ACETAMINOPHEN, ANHYDROUS CAFFEINE, PROMETHAZI [Concomitant]
  4. LOXOPROFEN (LOXOPROFEN) [Suspect]
     Indication: PREGNANCY
     Dates: start: 20080911, end: 20090603
  5. DOMPERIDONE (DOMPERIDONE) [Suspect]
     Indication: PREGNANCY
     Dates: start: 20081029, end: 20090110
  6. EBASTINE [Concomitant]
  7. MUCOSIL-10 [Concomitant]
  8. PEG-INTRON [Suspect]
     Indication: PREGNANCY
     Dates: start: 20080910, end: 20090527
  9. NEODAY [Concomitant]
  10. RIBAVIRIN [Suspect]
  11. ETIZOLAM (ETIZOLAM) [Suspect]
     Indication: PREGNANCY
     Dates: start: 20080919, end: 20080920
  12. ETIZOLAM (ETIZOLAM) [Suspect]
     Indication: PREGNANCY
     Dates: start: 20081105, end: 20090531
  13. ETIZOLAM (ETIZOLAM) [Suspect]
     Indication: PREGNANCY
     Dates: start: 20080916, end: 20080916
  14. ETIZOLAM (ETIZOLAM) [Suspect]
     Indication: PREGNANCY
     Dates: start: 20080921, end: 20081029
  15. HIRDOID SOFT (HEPARINOID) (HEPARINOID /00723701/) [Suspect]
     Indication: PREGNANCY
     Dates: start: 20081105, end: 20081224
  16. DIPHENHYDRAMINE HCL [Suspect]
     Indication: PREGNANCY
     Dates: start: 20081015, end: 20090311
  17. DIPHENHYDRAMINE HCL [Suspect]
     Indication: PREGNANCY
     Dates: start: 20080913, end: 20080919
  18. DIPHENHYDRAMINE HCL [Suspect]
     Indication: PREGNANCY
     Dates: start: 20080913, end: 20080915
  19. LANSOPRAZOLE [Suspect]
     Indication: PREGNANCY
     Dates: start: 20080919, end: 20080925
  20. LANSOPRAZOLE [Suspect]
     Indication: PREGNANCY
     Dates: start: 20081001, end: 20090617

REACTIONS (7)
  - CEREBRAL VENTRICLE DILATATION [None]
  - MENINGOCELE [None]
  - PATERNAL DRUGS AFFECTING FOETUS [None]
  - CAESAREAN SECTION [None]
  - HYDROCEPHALUS [None]
  - LOW BIRTH WEIGHT BABY [None]
  - ASTHMA [None]
